FAERS Safety Report 17600434 (Version 5)
Quarter: 2021Q1

REPORT INFORMATION
  Report Type: Spontaneous
  Country: US (occurrence: US)
  Receive Date: 20200330
  Receipt Date: 20210204
  Transmission Date: 20210419
  Serious: Yes (Other)
  Sender: FDA-Public Use
  Company Number: US-PFIZER INC-2020126488

PATIENT
  Age: 44 Year
  Sex: Female

DRUGS (2)
  1. XELJANZ [Suspect]
     Active Substance: TOFACITINIB CITRATE
     Indication: PSORIATIC ARTHROPATHY
     Dosage: 5 MG, 2X/DAY
     Route: 048
     Dates: start: 2019
  2. XELJANZ [Suspect]
     Active Substance: TOFACITINIB CITRATE
     Indication: CROHN^S DISEASE
     Dosage: 10 MG, 2X/DAY
     Route: 048
     Dates: start: 2019

REACTIONS (8)
  - Pain [Unknown]
  - Depression [Unknown]
  - Herpes virus infection [Not Recovered/Not Resolved]
  - Disease recurrence [Not Recovered/Not Resolved]
  - Abdominal distension [Unknown]
  - Constipation [Unknown]
  - Impaired gastric emptying [Unknown]
  - Decreased appetite [Unknown]

NARRATIVE: CASE EVENT DATE: 202006
